FAERS Safety Report 23130851 (Version 1)
Quarter: 2023Q4

REPORT INFORMATION
  Report Type: Spontaneous
  Country: US (occurrence: None)
  Receive Date: 20231030
  Receipt Date: 20231030
  Transmission Date: 20240110
  Serious: Yes (unspecified)
  Sender: FDA-Public Use
  Company Number: None

PATIENT
  Age: 67 Year
  Sex: Female

DRUGS (4)
  1. EQUATE LUBRICANT EYE DROPS [Suspect]
     Active Substance: POLYETHYLENE GLYCOL 400\PROPYLENE GLYCOL
     Indication: Dry eye
     Dosage: FREQUENCY : AS NEEDED;?
     Route: 047
     Dates: start: 20210601, end: 20230901
  2. EQUATE LUBRICANT EYE DROPS [Suspect]
     Active Substance: POLYETHYLENE GLYCOL 400\PROPYLENE GLYCOL
     Indication: Eye pruritus
  3. EQUATE LUBRICANT EYE DROPS [Suspect]
     Active Substance: POLYETHYLENE GLYCOL 400\PROPYLENE GLYCOL
     Indication: Dry eye
     Dosage: OTHER QUANTITY : 2 DROP(S);?FREQUENCY : AS NEEDED;?
     Route: 047
     Dates: start: 20211201, end: 20230831
  4. EQUATE LUBRICANT EYE DROPS [Suspect]
     Active Substance: POLYETHYLENE GLYCOL 400\PROPYLENE GLYCOL
     Indication: Eye pruritus

REACTIONS (3)
  - Retinal tear [None]
  - Vitreous floaters [None]
  - Vision blurred [None]

NARRATIVE: CASE EVENT DATE: 20230418
